FAERS Safety Report 7996252-1 (Version None)
Quarter: 2011Q4

REPORT INFORMATION
  Report Type: 
  Country: None (occurrence: None)
  Receive Date: 20111220
  Receipt Date: 20111213
  Transmission Date: 20120403
  Serious: Yes (Death, Hospitalization)
  Sender: FDA-Public Use
  Company Number: FR-CELGENEUS-056-50794-11121560

PATIENT
  Sex: Male

DRUGS (4)
  1. VIDAZA [Suspect]
     Dosage: 22.8571 MILLIGRAM
     Route: 058
     Dates: start: 20091012, end: 20100602
  2. LOPRESSOR [Concomitant]
     Route: 065
  3. ZOFRAN [Concomitant]
     Dosage: 16 MILLIGRAM
     Route: 048
     Dates: start: 20091012, end: 20100602
  4. MORPHINE SULFATE [Concomitant]
     Dosage: 10 MILLIGRAM
     Route: 048

REACTIONS (5)
  - AGRANULOCYTOSIS [None]
  - DIARRHOEA [None]
  - THROMBOCYTOPENIA [None]
  - PYREXIA [None]
  - SEPSIS [None]
